FAERS Safety Report 12789726 (Version 1)
Quarter: 2016Q3

REPORT INFORMATION
  Report Type: Spontaneous
  Country: US (occurrence: US)
  Receive Date: 20160928
  Receipt Date: 20160928
  Transmission Date: 20161109
  Serious: No
  Sender: FDA-Public Use
  Company Number: US-BAYER-2016-188453

PATIENT
  Age: 18 Year
  Sex: Female

DRUGS (1)
  1. MIRENA [Suspect]
     Active Substance: LEVONORGESTREL
     Indication: CONTRACEPTION
     Dosage: 20 MCG/24HR, CONT
     Route: 015
     Dates: start: 20160512, end: 20160512

REACTIONS (4)
  - Procedural pain [None]
  - Procedural vomiting [None]
  - Procedural nausea [None]
  - Complication of device insertion [None]

NARRATIVE: CASE EVENT DATE: 20160512
